FAERS Safety Report 10442070 (Version 1)
Quarter: 2014Q3

REPORT INFORMATION
  Report Type: Spontaneous
  Country: CA (occurrence: CA)
  Receive Date: 20140909
  Receipt Date: 20140909
  Transmission Date: 20150326
  Serious: Yes (Disabling)
  Sender: FDA-Public Use
  Company Number: CA-TEVA-507116USA

PATIENT
  Age: 71 Year
  Sex: Female
  Weight: 95.34 kg

DRUGS (6)
  1. ARTHROTEC [Concomitant]
     Active Substance: DICLOFENAC SODIUM\MISOPROSTOL
  2. TEVA-LANSOPRAZOLE [Suspect]
     Active Substance: LANSOPRAZOLE
     Indication: PRODUCT USED FOR UNKNOWN INDICATION
     Dosage: 30 MILLIGRAM DAILY; CAPSULE, DELAYED RELEASE
     Route: 048
  3. ESTRADIOL. [Concomitant]
     Active Substance: ESTRADIOL
  4. CLONIDINE. [Concomitant]
     Active Substance: CLONIDINE
  5. LOVASTATIN. [Concomitant]
     Active Substance: LOVASTATIN
  6. NORTRIPTYLINE [Concomitant]
     Active Substance: NORTRIPTYLINE

REACTIONS (4)
  - Condition aggravated [Recovered/Resolved]
  - Drug ineffective [Recovered/Resolved]
  - Gastrooesophageal reflux disease [Recovered/Resolved]
  - Nausea [Recovered/Resolved]
